FAERS Safety Report 5228066-X (Version None)
Quarter: 2007Q1

REPORT INFORMATION
  Report Type: 
  Country: None (occurrence: None)
  Receive Date: 20061201
  Receipt Date: 20060919
  Transmission Date: 20070707
  Serious: No
  Sender: FDA-Public Use
  Company Number: US200606003641

PATIENT
  Age: 51 Year
  Sex: Female
  Weight: 67.9 kg

DRUGS (5)
  1. ALIMTA [Suspect]
     Indication: BRONCHIOLOALVEOLAR CARCINOMA
     Dosage: 800 MG, OTHER, INTRAVENOUS
     Route: 042
     Dates: start: 20050901
  2. ALIMTA [Suspect]
     Indication: BRONCHIOLOALVEOLAR CARCINOMA
     Dosage: 800 MG, OTHER, INTRAVENOUS
     Route: 042
     Dates: start: 20060501
  3. FOLIC ACID [Concomitant]
  4. VITAMIN B12 [Concomitant]
  5. CORTICOSTEROID NOS (CORTICOSTEROID NOS) [Concomitant]

REACTIONS (4)
  - LIMB DISCOMFORT [None]
  - MUSCULOSKELETAL DISCOMFORT [None]
  - OEDEMA [None]
  - SWELLING FACE [None]
